FAERS Safety Report 14604164 (Version 1)
Quarter: 2018Q1

REPORT INFORMATION
  Report Type: Spontaneous
  Country: US (occurrence: US)
  Receive Date: 20180305
  Receipt Date: 20180305
  Transmission Date: 20180509
  Serious: Yes (Death)
  Sender: FDA-Public Use
  Company Number: None

PATIENT

DRUGS (2)
  1. IPRATROPIUM ALBUTEROL 0.5-2.5 (3)MG/(3)ML [Suspect]
     Active Substance: ALBUTEROL\IPRATROPIUM
  2. ACETAMINOPHEN 160MG/5ML [Suspect]
     Active Substance: ACETAMINOPHEN

REACTIONS (1)
  - Death [None]
